FAERS Safety Report 25155916 (Version 1)
Quarter: 2025Q2

REPORT INFORMATION
  Report Type: Spontaneous
  Country: GB (occurrence: GB)
  Receive Date: 20250403
  Receipt Date: 20250403
  Transmission Date: 20250717
  Serious: Yes (Other)
  Sender: MYLAN
  Company Number: GB-MYLANLABS-2024M1052253

PATIENT
  Sex: Female

DRUGS (3)
  1. CLOZARIL [Suspect]
     Active Substance: CLOZAPINE
     Indication: Borderline personality disorder
     Dates: start: 20170524, end: 20250325
  2. CLOZARIL [Suspect]
     Active Substance: CLOZAPINE
     Indication: Intellectual disability
  3. CLOZARIL [Suspect]
     Active Substance: CLOZAPINE
     Indication: Abnormal behaviour

REACTIONS (5)
  - Mental impairment [Unknown]
  - Differential white blood cell count abnormal [Unknown]
  - Stress [Unknown]
  - Off label use [Unknown]
  - Treatment noncompliance [Unknown]
